FAERS Safety Report 7413426-9 (Version None)
Quarter: 2011Q2

REPORT INFORMATION
  Report Type: 
  Country: None (occurrence: None)
  Receive Date: 20110413
  Receipt Date: 20110408
  Transmission Date: 20111010
  Serious: Yes (Life-Threatening, Hospitalization)
  Sender: FDA-Public Use
  Company Number: GB-ELI_LILLY_AND_COMPANY-GB201104002218

PATIENT
  Age: 70 Year
  Sex: Female
  Weight: 83 kg

DRUGS (6)
  1. BYETTA [Suspect]
     Dosage: 10 UG, BID
     Dates: start: 20101117, end: 20110324
  2. SIMVASTATIN [Concomitant]
     Dosage: UNK, UNKNOWN
  3. METFORMIN [Concomitant]
     Dosage: UNK, UNKNOWN
  4. BENDROFLUMETHIAZIDE [Concomitant]
     Dosage: UNK, UNKNOWN
  5. LEVOTHYROXINE [Concomitant]
     Dosage: UNK, UNKNOWN
  6. RAMIPRIL [Concomitant]
     Dosage: UNK, UNKNOWN

REACTIONS (3)
  - PANCREATITIS ACUTE [None]
  - RENAL FAILURE [None]
  - SEPSIS [None]
